FAERS Safety Report 16613371 (Version 1)
Quarter: 2019Q3

REPORT INFORMATION
  Report Type: Report from Study
  Country: None (occurrence: US)
  Receive Date: 20190722
  Receipt Date: 20190722
  Transmission Date: 20191004
  Serious: Yes (Other)
  Sender: FDA-Public Use
  Company Number: US-ABBVIE-19K-163-2854247-00

PATIENT
  Sex: Female

DRUGS (1)
  1. HUMIRA [Suspect]
     Active Substance: ADALIMUMAB
     Indication: PSORIASIS
     Route: 058

REACTIONS (5)
  - Joint injury [Not Recovered/Not Resolved]
  - Gait disturbance [Unknown]
  - Impaired healing [Unknown]
  - Bladder disorder [Not Recovered/Not Resolved]
  - Procedural failure [Unknown]
